FAERS Safety Report 5502879-9 (Version None)
Quarter: 2007Q4

REPORT INFORMATION
  Report Type: 
  Country: None (occurrence: None)
  Receive Date: 20071031
  Receipt Date: 20071029
  Transmission Date: 20080405
  Serious: Yes (Hospitalization, Other)
  Sender: FDA-Public Use
  Company Number: A0689980A

PATIENT
  Age: 62 Year
  Sex: Female

DRUGS (5)
  1. ALLI [Suspect]
     Route: 048
     Dates: start: 20070815, end: 20070927
  2. COZAAR [Concomitant]
  3. CALTRATE [Concomitant]
  4. ASPIRIN [Concomitant]
  5. ZOLOFT [Concomitant]

REACTIONS (4)
  - GALLBLADDER DISORDER [None]
  - HEPATIC ENZYME INCREASED [None]
  - PAIN [None]
  - PHARMACEUTICAL PRODUCT COMPLAINT [None]
